FAERS Safety Report 9436806 (Version 1)
Quarter: 2013Q3

REPORT INFORMATION
  Report Type: Spontaneous
  Country: PL (occurrence: PL)
  Receive Date: 20130802
  Receipt Date: 20130802
  Transmission Date: 20140515
  Serious: Yes (Hospitalization)
  Sender: FDA-Public Use
  Company Number: PL-RANBAXY-2013RR-71660

PATIENT
  Age: 56 Year
  Sex: Male
  Weight: 70 kg

DRUGS (5)
  1. KLABAX 500 MG TABLET [Suspect]
     Indication: PNEUMONIA
     Dosage: 1000 MG/DAY
     Route: 048
     Dates: start: 20120804, end: 20120807
  2. AUGMENTIN [Concomitant]
     Indication: PNEUMONIA
     Dosage: 2400 MG/DAY
     Route: 042
     Dates: start: 20130807
  3. GENTAMYCIN [Concomitant]
     Indication: PNEUMONIA
     Dosage: 240 MG
     Route: 042
     Dates: start: 20120810, end: 20120817
  4. DIUVER [Concomitant]
     Indication: OEDEMA
     Dosage: 20 MG/DAY
     Route: 048
     Dates: start: 20120813
  5. CONTROLOC [Concomitant]
     Indication: GASTRODUODENITIS
     Dosage: 80 MG/DAY
     Route: 048
     Dates: start: 20120808

REACTIONS (3)
  - Rash [Unknown]
  - Petechiae [Unknown]
  - Blister [Unknown]
